FAERS Safety Report 9533064 (Version 1)
Quarter: 2013Q1

REPORT INFORMATION
  Report Type: Spontaneous
  Country: US (occurrence: None)
  Receive Date: 20130322
  Receipt Date: 20130322
  Transmission Date: 20140127
  Serious: Yes (Other)
  Sender: FDA-Public Use
  Company Number: PHEH2012US003293

PATIENT
  Age: 66 Year
  Sex: Female

DRUGS (1)
  1. NEORAL (CICLOSPORIN) [Suspect]
     Indication: PSORIASIS
     Route: 048
     Dates: start: 201008, end: 201106

REACTIONS (4)
  - Psoriasis [None]
  - Lung neoplasm malignant [None]
  - Dyspnoea [None]
  - Pleural effusion [None]
